FAERS Safety Report 12046990 (Version 1)
Quarter: 2016Q1

REPORT INFORMATION
  Report Type: Report from Study
  Country: US (occurrence: US)
  Receive Date: 20160209
  Receipt Date: 20160209
  Transmission Date: 20160526
  Serious: Yes (Death, Hospitalization)
  Sender: FDA-Public Use
  Company Number: US-ROCHE-1704906

PATIENT
  Age: 66 Year
  Sex: Male

DRUGS (4)
  1. CETUXIMAB [Suspect]
     Active Substance: CETUXIMAB
     Dosage: OVER 60 MIN ON DAYS 8, 15, AND 22 (CYCLE 1)?OVER 60 MIN ON DAYS 1, 8, 15, AND 22 (CYCLE 2)
     Route: 042
  2. CETUXIMAB [Suspect]
     Active Substance: CETUXIMAB
     Indication: METASTATIC RENAL CELL CARCINOMA
     Dosage: OVER 120 MIN ON DAY 1 (CYCLE 1)
     Route: 042
     Dates: start: 20061019
  3. ERLOTINIB [Suspect]
     Active Substance: ERLOTINIB
     Indication: METASTATIC RENAL CELL CARCINOMA
     Dosage: LAST DOSE RECEIVED ON 24/MAY/2007
     Route: 048
     Dates: start: 20061019
  4. BEVACIZUMAB [Suspect]
     Active Substance: BEVACIZUMAB
     Indication: METASTATIC RENAL CELL CARCINOMA
     Dosage: 10 MG/KG/DAY ON DAYS 1 AND 15?LAST DOSE RECEIVED ON 17/MAY/2007
     Route: 040
     Dates: start: 20061019

REACTIONS (6)
  - Death [Fatal]
  - Abdominal pain [Unknown]
  - Non-cardiac chest pain [Unknown]
  - Dyspnoea [Unknown]
  - Fatigue [Unknown]
  - Back pain [Unknown]

NARRATIVE: CASE EVENT DATE: 20070612
